FAERS Safety Report 8168145-0 (Version None)
Quarter: 2012Q1

REPORT INFORMATION
  Report Type: 
  Country: None (occurrence: None)
  Receive Date: 20120227
  Receipt Date: 20120221
  Transmission Date: 20120608
  Serious: Yes (Hospitalization)
  Sender: FDA-Public Use
  Company Number: PHEH2012US004020

PATIENT
  Sex: Female

DRUGS (16)
  1. PROPAFENONE HCL [Concomitant]
     Indication: HEART RATE IRREGULAR
     Dosage: 150 MG, BID
  2. SIMVASTATIN [Concomitant]
     Dosage: UNK UKN, UNK
  3. CALCIUM [Concomitant]
     Dosage: 112 MG, UNK
  4. VITAMIN D [Concomitant]
     Dosage: 1000 IU, UNK
  5. FLONASE [Concomitant]
  6. RECLAST [Suspect]
     Dosage: 5 MG, ONCE A YEAR
     Route: 042
     Dates: start: 20120207
  7. VITAMIN E [Concomitant]
     Dosage: UNK UKN, UNK
  8. COQ10 [Concomitant]
     Dosage: UNK UKN, UNK
  9. ALPRAZOLAM [Concomitant]
  10. ENALAPRIL MALEATE [Concomitant]
     Dosage: UNK UKN, UNK
  11. ZANTAC [Concomitant]
  12. MULTI-VITAMIN [Concomitant]
     Dosage: UNK UKN, UNK
  13. GLUCOSAMINE W/CHONDROITIN [Concomitant]
     Dosage: UNK UKN, UNK
  14. SYNTHROID [Concomitant]
     Dosage: UNK UKN, UNK
  15. HYDROCHLOROTHIAZIDE [Concomitant]
     Dosage: UNK UKN, UNK
  16. ZOLPIDEM [Concomitant]
     Dosage: 10 MG, UNK

REACTIONS (10)
  - PAIN [None]
  - DIARRHOEA [None]
  - NECK PAIN [None]
  - MIGRAINE [None]
  - NASOPHARYNGITIS [None]
  - EYE PAIN [None]
  - INSOMNIA [None]
  - CHILLS [None]
  - LOCAL SWELLING [None]
  - NAUSEA [None]
